FAERS Safety Report 12384050 (Version 1)
Quarter: 2016Q2

REPORT INFORMATION
  Report Type: Spontaneous
  Country: US (occurrence: None)
  Receive Date: 20160518
  Receipt Date: 20160518
  Transmission Date: 20160815
  Serious: Yes (Disabling)
  Sender: FDA-Public Use
  Company Number: None

PATIENT
  Age: 45 Year
  Sex: Female
  Weight: 62.6 kg

DRUGS (3)
  1. NAPROXEN. [Concomitant]
     Active Substance: NAPROXEN
  2. IBUPROFEN. [Concomitant]
     Active Substance: IBUPROFEN
  3. ZYRTEC [Suspect]
     Active Substance: CETIRIZINE HYDROCHLORIDE
     Indication: SEASONAL ALLERGY
     Route: 048

REACTIONS (22)
  - Depression [None]
  - Activities of daily living impaired [None]
  - Sleep paralysis [None]
  - Facial pain [None]
  - Eye pain [None]
  - Somnolence [None]
  - Nervous system disorder [None]
  - Ocular discomfort [None]
  - Impaired driving ability [None]
  - Anxiety [None]
  - Diplopia [None]
  - Neuralgia [None]
  - Headache [None]
  - Arthralgia [None]
  - Burning sensation [None]
  - Anhedonia [None]
  - Fatigue [None]
  - Pelvic pain [None]
  - Sinus headache [None]
  - Hypoaesthesia [None]
  - Head discomfort [None]
  - Paraesthesia [None]
